FAERS Safety Report 6618460-4 (Version None)
Quarter: 2010Q1

REPORT INFORMATION
  Report Type: 
  Country: None (occurrence: None)
  Receive Date: 20100308
  Receipt Date: 20100226
  Transmission Date: 20100710
  Serious: Yes (Hospitalization)
  Sender: FDA-Public Use
  Company Number: JP-ROCHE-592252

PATIENT
  Sex: Male

DRUGS (28)
  1. TOCILIZUMAB [Suspect]
     Indication: CASTLEMAN'S DISEASE
     Dosage: DOSE INCREASED
     Route: 041
     Dates: start: 20080118, end: 20080118
  2. TOCILIZUMAB [Suspect]
     Dosage: DOSE INCREASED
     Route: 041
     Dates: start: 20080201, end: 20080201
  3. TOCILIZUMAB [Suspect]
     Route: 041
     Dates: start: 20080215, end: 20080215
  4. TOCILIZUMAB [Suspect]
     Dosage: DOSE DECREASED
     Route: 041
     Dates: start: 20080229, end: 20080718
  5. TOCILIZUMAB [Suspect]
     Route: 041
     Dates: start: 20080801, end: 20081219
  6. TOCILIZUMAB [Suspect]
     Route: 041
     Dates: start: 20090108, end: 20090806
  7. TOCILIZUMAB [Suspect]
     Route: 041
     Dates: start: 20090821, end: 20090821
  8. TOCILIZUMAB [Suspect]
     Route: 041
     Dates: start: 20090903
  9. PREDONINE [Suspect]
     Indication: CASTLEMAN'S DISEASE
     Dosage: DOSE DECREASED
     Route: 048
     Dates: start: 20071222, end: 20080214
  10. PREDONINE [Suspect]
     Dosage: DOSE DECREASED
     Route: 048
     Dates: start: 20080215, end: 20080228
  11. PREDONINE [Suspect]
     Dosage: DOSE DECREASED
     Route: 048
     Dates: start: 20080229, end: 20080327
  12. PREDONINE [Suspect]
     Dosage: DOSE DECREASED
     Route: 048
     Dates: start: 20080328, end: 20080424
  13. PREDONINE [Suspect]
     Dosage: DOSE DECREASED
     Route: 048
     Dates: start: 20080425, end: 20080522
  14. PREDONINE [Suspect]
     Route: 048
     Dates: start: 20080523, end: 20080605
  15. PREDONINE [Suspect]
     Dosage: DOSE DECREASED
     Route: 048
     Dates: start: 20080606, end: 20080703
  16. PREDONINE [Suspect]
     Dosage: DOSE DECREASED
     Route: 048
     Dates: start: 20080704, end: 20080717
  17. PREDONINE [Suspect]
     Dosage: DOSE DECREASED
     Route: 048
     Dates: start: 20080718, end: 20080813
  18. PREDONINE [Suspect]
     Route: 048
     Dates: start: 20080814
  19. ACTONEL [Concomitant]
     Dosage: DRUG: ACTONEL(SODIUM RISEDRONATE HYDRATE).
     Route: 048
     Dates: end: 20080912
  20. PARIET [Concomitant]
     Dosage: DRUG: PARIET(SODIUM RABEPRAZOLE).
     Route: 048
  21. DIOVAN [Concomitant]
     Route: 048
  22. ACECOL [Concomitant]
     Dosage: DRUG: ACECOL(TEMOCAPRIL HYDROCHLORIDE).
     Route: 048
  23. FLUITRAN [Concomitant]
     Route: 048
     Dates: end: 20081107
  24. LIPITOR [Concomitant]
     Dosage: DRUG: LIPITOR(ATORVASTATIN CALCIUM).
     Route: 048
     Dates: start: 20071205, end: 20080912
  25. PLETAL [Concomitant]
     Route: 048
     Dates: start: 20071220
  26. POLYFUL [Concomitant]
     Dosage: FORM: FINE GRANULES.
     Route: 048
     Dates: start: 20080307, end: 20080912
  27. SALOBEL [Concomitant]
     Route: 048
     Dates: start: 20080328
  28. SHAKUYAKU-KANZO-TO [Concomitant]
     Dosage: FORM: ORA FORMULATION NOS
     Route: 048
     Dates: start: 20080620

REACTIONS (6)
  - ARTHRALGIA [None]
  - HYPERURICAEMIA [None]
  - INFECTED EPIDERMAL CYST [None]
  - LYMPHADENOPATHY [None]
  - MUSCLE SPASMS [None]
  - MUSCULOSKELETAL STIFFNESS [None]
